FAERS Safety Report 26212320 (Version 1)
Quarter: 2025Q4

REPORT INFORMATION
  Report Type: Spontaneous
  Country: US (occurrence: US)
  Receive Date: 20251230
  Receipt Date: 20251230
  Transmission Date: 20260117
  Serious: Yes (Hospitalization)
  Sender: IPSEN BIOPHARMACEUTICALS, INC.
  Company Number: US-IPSEN Group, Research and Development-2025-31830

PATIENT
  Sex: Female
  Weight: 13.7 kg

DRUGS (1)
  1. BYLVAY [Suspect]
     Active Substance: ODEVIXIBAT
     Indication: Product used for unknown indication
     Dosage: ORAL PELLET?DOSE/FREQUENCY: SPRINKLE/MIX 600 MCG TOTAL (1 PELLET) WITH/OVER FOOD AND TAKE ONCE IN THE MORNING. DO NOT SWALLOW WHOLE.
     Route: 048

REACTIONS (1)
  - Liver transplant [Unknown]
